FAERS Safety Report 19146268 (Version 1)
Quarter: 2021Q2

REPORT INFORMATION
  Report Type: Spontaneous
  Country: US (occurrence: US)
  Receive Date: 20210416
  Receipt Date: 20210416
  Transmission Date: 20210717
  Serious: No
  Sender: FDA-Public Use
  Company Number: US-GW PHARMA-202104USGW01549

PATIENT

DRUGS (2)
  1. EPIDIOLEX [Suspect]
     Active Substance: CANNABIDIOL
     Dosage: 300 MILLIGRAM, BID (MD SENT IN NEW PRESCRIPTION FOR 400MG TWICE A DAY THAT PHARMACY IS IN THE PROCES
     Route: 048
     Dates: start: 20191008
  2. EPIDIOLEX [Suspect]
     Active Substance: CANNABIDIOL
     Indication: EPILEPSY
     Dosage: 200 MILLIGRAM, BID
     Route: 048

REACTIONS (1)
  - Seizure [Recovering/Resolving]
